FAERS Safety Report 5363026-X (Version None)
Quarter: 2007Q2

REPORT INFORMATION
  Report Type: 
  Country: None (occurrence: None)
  Receive Date: 20070618
  Receipt Date: 20070607
  Transmission Date: 20071010
  Serious: Yes (Other)
  Sender: FDA-Public Use
  Company Number: 16728

PATIENT
  Age: 17 Year
  Sex: Male

DRUGS (10)
  1. METHOTREXATE [Suspect]
     Indication: BONE SARCOMA
     Dates: start: 19990401, end: 20001101
  2. METHOTREXATE [Suspect]
     Indication: METASTASES TO LUNG
     Dates: start: 19990401, end: 20001101
  3. DOXORUBICIN HCL [Suspect]
     Indication: BONE SARCOMA
     Dates: start: 19990401, end: 20001101
  4. DOXORUBICIN HCL [Suspect]
     Indication: METASTASES TO LUNG
     Dates: start: 19990401, end: 20001101
  5. IFOSFAMIDE [Suspect]
     Indication: BONE SARCOMA
     Dates: start: 19990401, end: 20001101
  6. IFOSFAMIDE [Suspect]
     Indication: METASTASES TO LUNG
     Dates: start: 19990401, end: 20001101
  7. IFOSFAMIDE [Suspect]
     Indication: METASTASIS
     Dates: start: 19990401, end: 20001101
  8. IFOSFAMIDE [Suspect]
     Indication: METASTASES TO LUNG
     Dates: start: 20010601, end: 20011101
  9. CISPLATIN [Suspect]
     Indication: BONE SARCOMA
     Dates: start: 19990401, end: 20001101
  10. ETOPOSIDE [Suspect]
     Indication: BONE SARCOMA
     Dates: start: 20010601, end: 20011101

REACTIONS (9)
  - HAEMOGLOBIN DECREASED [None]
  - MELAENA [None]
  - METASTASES TO BONE [None]
  - METASTASES TO LUNG [None]
  - METASTASES TO STOMACH [None]
  - OBLITERATIVE BRONCHIOLITIS [None]
  - OSTEOSARCOMA METASTATIC [None]
  - SYNCOPE [None]
  - TUMOUR NECROSIS [None]
